FAERS Safety Report 4265201-4 (Version None)
Quarter: 2004Q1

REPORT INFORMATION
  Report Type: 
  Country: None (occurrence: None)
  Receive Date: 20040106
  Receipt Date: 20040106
  Transmission Date: 20041129
  Serious: Yes (Other)
  Sender: FDA-Public Use
  Company Number: None

PATIENT
  Age: 55 Year
  Sex: Female
  Weight: 68.0396 kg

DRUGS (3)
  1. LIDODERM [Suspect]
     Indication: BURSITIS
     Dosage: 2 EVERYDAY YEARS
     Route: 062
     Dates: end: 20030301
  2. LIDODERM [Suspect]
     Indication: FIBROMYALGIA
     Dosage: 2 EVERYDAY YEARS
     Route: 062
     Dates: end: 20030301
  3. LIDODERM [Suspect]

REACTIONS (1)
  - PHARMACEUTICAL PRODUCT COMPLAINT [None]
